FAERS Safety Report 5470968-3 (Version None)
Quarter: 2007Q3

REPORT INFORMATION
  Report Type: 
  Country: None (occurrence: None)
  Receive Date: 20070928
  Receipt Date: 20070917
  Transmission Date: 20080115
  Serious: Yes (Life-Threatening, Hospitalization)
  Sender: FDA-Public Use
  Company Number: US-ROCHE-519031

PATIENT
  Age: 52 Year
  Sex: Female

DRUGS (1)
  1. BONIVA [Suspect]
     Indication: OSTEOPOROSIS
     Dosage: 3MG/3 ML; THE PATIENT RECEIVED 1/2 OF HER SECOND DOSE WHEN THE EVENT OCCURRED.
     Route: 042
     Dates: start: 20070514, end: 20070821

REACTIONS (1)
  - CONVULSION [None]
